FAERS Safety Report 9386204 (Version 1)
Quarter: 2013Q3

REPORT INFORMATION
  Report Type: Spontaneous
  Country: DE (occurrence: DE)
  Receive Date: 20130708
  Receipt Date: 20130708
  Transmission Date: 20140515
  Serious: Yes (Hospitalization, Disabling)
  Sender: FDA-Public Use
  Company Number: DE-009507513-1307DEU002198

PATIENT
  Sex: Male

DRUGS (1)
  1. PROPECIA 1MG FILMTABLETTEN [Suspect]
     Dosage: UNK
     Route: 048
     Dates: start: 200912, end: 201207

REACTIONS (4)
  - General physical health deterioration [Not Recovered/Not Resolved]
  - Adverse event [Not Recovered/Not Resolved]
  - Loss of libido [Not Recovered/Not Resolved]
  - Erectile dysfunction [Not Recovered/Not Resolved]
